FAERS Safety Report 12468873 (Version 5)
Quarter: 2016Q4

REPORT INFORMATION
  Report Type: Report from Study
  Country: CA (occurrence: CA)
  Receive Date: 20160615
  Receipt Date: 20161214
  Transmission Date: 20170207
  Serious: Yes (Other)
  Sender: FDA-Public Use
  Company Number: CA-JNJFOC-20160607511

PATIENT
  Age: 26 Year
  Sex: Female
  Weight: 119.2 kg

DRUGS (8)
  1. REMICADE [Suspect]
     Active Substance: INFLIXIMAB
     Indication: CROHN^S DISEASE
     Route: 042
     Dates: start: 20161022
  2. REMICADE [Suspect]
     Active Substance: INFLIXIMAB
     Indication: CROHN^S DISEASE
     Route: 042
     Dates: start: 20140424
  3. CIPRALEX [Concomitant]
     Active Substance: ESCITALOPRAM OXALATE
     Indication: DEPRESSION
     Route: 065
  4. REMICADE [Suspect]
     Active Substance: INFLIXIMAB
     Indication: CROHN^S DISEASE
     Route: 042
     Dates: start: 20160830
  5. REMICADE [Suspect]
     Active Substance: INFLIXIMAB
     Indication: CROHN^S DISEASE
     Route: 042
     Dates: start: 20161206
  6. REMICADE [Suspect]
     Active Substance: INFLIXIMAB
     Indication: CROHN^S DISEASE
     Route: 042
     Dates: start: 20140410
  7. REMICADE [Suspect]
     Active Substance: INFLIXIMAB
     Indication: CROHN^S DISEASE
     Route: 042
     Dates: start: 201410
  8. REMICADE [Suspect]
     Active Substance: INFLIXIMAB
     Indication: CROHN^S DISEASE
     Route: 042
     Dates: start: 20160607

REACTIONS (19)
  - Gingival pain [Unknown]
  - Infusion related reaction [Recovered/Resolved]
  - Rash [Unknown]
  - Crohn^s disease [Not Recovered/Not Resolved]
  - Product use issue [Unknown]
  - General physical health deterioration [Not Recovered/Not Resolved]
  - Anxiety [Recovered/Resolved]
  - Eczema [Not Recovered/Not Resolved]
  - Benign breast neoplasm [Unknown]
  - Staphylococcal infection [Recovered/Resolved]
  - Intervertebral disc degeneration [Unknown]
  - Eye disorder [Recovering/Resolving]
  - Eye discharge [Recovering/Resolving]
  - Off label use [Unknown]
  - Skin fissures [Unknown]
  - Vision blurred [Unknown]
  - Rash [Not Recovered/Not Resolved]
  - Hypoaesthesia [Not Recovered/Not Resolved]
  - Hot flush [Recovered/Resolved]

NARRATIVE: CASE EVENT DATE: 20140424
